FAERS Safety Report 4519883-X (Version None)
Quarter: 2004Q4

REPORT INFORMATION
  Report Type: 
  Country: None (occurrence: None)
  Receive Date: 20041201
  Receipt Date: 20041201
  Transmission Date: 20050328
  Serious: Yes (Other)
  Sender: FDA-Public Use
  Company Number: None

PATIENT
  Sex: Female
  Weight: 176.9028 kg

DRUGS (2)
  1. PIROXICAM [Suspect]
     Indication: ARTHRITIS
     Dosage: 1             PER DAY  ORAL
     Route: 048
  2. PIROXICAM [Suspect]
     Indication: SWELLING
     Dosage: 1             PER DAY  ORAL
     Route: 048

REACTIONS (3)
  - BURNING SENSATION [None]
  - PRURITUS [None]
  - URTICARIA [None]
